FAERS Safety Report 8218294-3 (Version None)
Quarter: 2012Q1

REPORT INFORMATION
  Report Type: 
  Country: None (occurrence: None)
  Receive Date: 20120319
  Receipt Date: 20120306
  Transmission Date: 20120608
  Serious: Yes (Other)
  Sender: FDA-Public Use
  Company Number: CA-FRI-1000028929

PATIENT
  Sex: Female

DRUGS (2)
  1. ROFLUMILAST [Suspect]
     Dates: start: 20110101
  2. ROFLUMILAST [Suspect]

REACTIONS (1)
  - NO ADVERSE EVENT [None]
